FAERS Safety Report 10532811 (Version 3)
Quarter: 2014Q4

REPORT INFORMATION
  Report Type: Spontaneous
  Country: JP (occurrence: JP)
  Receive Date: 20141022
  Receipt Date: 20141219
  Transmission Date: 20150529
  Serious: Yes (Death, Other)
  Sender: FDA-Public Use
  Company Number: JP-ROCHE-1477481

PATIENT
  Age: 63 Year
  Sex: Female

DRUGS (3)
  1. TACROLIMUS HYDRATE [Concomitant]
     Active Substance: TACROLIMUS
     Indication: PROPHYLAXIS AGAINST GRAFT VERSUS HOST DISEASE
     Dosage: DOSAGE IS UNCERTAIN.
     Route: 065
  2. METHOTREXATE [Concomitant]
     Active Substance: METHOTREXATE
     Indication: PROPHYLAXIS AGAINST GRAFT VERSUS HOST DISEASE
     Dosage: DOSAGE IS UNCERTAIN.
     Route: 065
  3. CELLCEPT [Suspect]
     Active Substance: MYCOPHENOLATE MOFETIL\MYCOPHENOLATE MOFETIL HYDROCHLORIDE
     Indication: PROPHYLAXIS AGAINST GRAFT VERSUS HOST DISEASE
     Dosage: DOSAGE IS UNCERTAIN.
     Route: 048

REACTIONS (4)
  - Zygomycosis [Unknown]
  - Off label use [Unknown]
  - Pneumonia [Fatal]
  - Myelitis transverse [Unknown]
